FAERS Safety Report 18656957 (Version 1)
Quarter: 2020Q4

REPORT INFORMATION
  Report Type: Spontaneous
  Country: US (occurrence: US)
  Receive Date: 20201224
  Receipt Date: 20201224
  Transmission Date: 20210114
  Serious: No
  Sender: FDA-Public Use
  Company Number: US-HORIZON-2020HZN02650

PATIENT
  Age: 36 Year
  Sex: Female

DRUGS (2)
  1. PROCYSBI [Suspect]
     Active Substance: CYSTEAMINE BITARTRATE
     Indication: CYSTINOSIS
     Dosage: 975MG EVERY 12 HOURS
     Dates: start: 20170325
  2. CYSTARAN [Concomitant]
     Active Substance: CYSTEAMINE HYDROCHLORIDE

REACTIONS (2)
  - Product administration error [Unknown]
  - Insomnia [Unknown]
